FAERS Safety Report 12059782 (Version 1)
Quarter: 2016Q1

REPORT INFORMATION
  Report Type: Spontaneous
  Country: GR (occurrence: GR)
  Receive Date: 20160210
  Receipt Date: 20160210
  Transmission Date: 20160526
  Serious: Yes (Hospitalization)
  Sender: FDA-Public Use
  Company Number: GR-PFIZER INC-2016073918

PATIENT
  Age: 64 Year
  Sex: Male
  Weight: 93 kg

DRUGS (2)
  1. LIPITOR [Concomitant]
     Active Substance: ATORVASTATIN CALCIUM
     Indication: HYPERCHOLESTEROLAEMIA
     Dosage: UNK
     Dates: start: 2015, end: 2015
  2. ZURCAZOL [Suspect]
     Active Substance: PANTOPRAZOLE SODIUM
     Indication: OESOPHAGITIS
     Dosage: 40 MG, UNK
     Route: 048
     Dates: start: 2006, end: 201510

REACTIONS (2)
  - Purpura [Not Recovered/Not Resolved]
  - Carcinoid tumour of the duodenum [Recovered/Resolved]

NARRATIVE: CASE EVENT DATE: 2015
